FAERS Safety Report 6492634-8 (Version None)
Quarter: 2009Q4

REPORT INFORMATION
  Report Type: 
  Country: None (occurrence: None)
  Receive Date: 20091209
  Receipt Date: 20091202
  Transmission Date: 20100525
  Serious: Yes (Hospitalization)
  Sender: FDA-Public Use
  Company Number: SPV1-2009-02130

PATIENT
  Age: 37 Year
  Sex: Female
  Weight: 59 kg

DRUGS (5)
  1. DAYTRANA [Suspect]
     Indication: ATTENTION DEFICIT/HYPERACTIVITY DISORDER
     Dosage: 30 MG, 1X/DAY:QD, TRANSDERMAL
     Route: 062
     Dates: start: 20060801
  2. PROZAC [Concomitant]
  3. CYMBALTA [Concomitant]
  4. AMBIEN [Concomitant]
  5. XANAX [Concomitant]

REACTIONS (4)
  - DRUG EXPOSURE DURING PREGNANCY [None]
  - PREGNANCY [None]
  - SPINAL FUSION SURGERY [None]
  - THERAPEUTIC RESPONSE UNEXPECTED [None]
